FAERS Safety Report 6872275-0 (Version None)
Quarter: 2010Q3

REPORT INFORMATION
  Report Type: 
  Country: None (occurrence: None)
  Receive Date: 20100723
  Receipt Date: 20100715
  Transmission Date: 20110219
  Serious: Yes (Hospitalization)
  Sender: FDA-Public Use
  Company Number: US-ROCHE-715960

PATIENT
  Sex: Male
  Weight: 82.1 kg

DRUGS (3)
  1. PEGINTERFERON ALFA-2A [Suspect]
     Dosage: DATE OF LAST DOSE PRIOR TO SAE:09 JULY 2010.
     Route: 058
     Dates: start: 20091028
  2. RIBAVIRIN [Suspect]
     Dosage: DATE OF LAST DOSE PRIOR TO SAE:13 JULY 2010.TEMPORARILY INTERRUPTED.
     Route: 048
     Dates: start: 20091028, end: 20100714
  3. RIBAVIRIN [Suspect]
     Dosage: DRUG RESTARTED.
     Route: 048
     Dates: start: 20100714

REACTIONS (4)
  - CHEST PAIN [None]
  - DIZZINESS [None]
  - DYSPNOEA [None]
  - MUSCLE SPASMS [None]
